FAERS Safety Report 17452978 (Version 1)
Quarter: 2020Q1

REPORT INFORMATION
  Report Type: Spontaneous
  Country: DK (occurrence: DK)
  Receive Date: 20200224
  Receipt Date: 20200224
  Transmission Date: 20200409
  Serious: Yes (Hospitalization, Disabling)
  Sender: FDA-Public Use
  Company Number: DK-MYLANLABS-2020M1019007

PATIENT
  Age: 53 Year
  Sex: Female

DRUGS (2)
  1. VIVELLE-DOT [Suspect]
     Active Substance: ESTRADIOL
     Indication: PRODUCT USED FOR UNKNOWN INDICATION
     Dosage: DOSIS: 50 MG/24 H.
     Route: 003
  2. SUMATRIPTAN. [Suspect]
     Active Substance: SUMATRIPTAN
     Indication: MIGRAINE
     Dosage: DOSIS: 50 MG PN. STYRKE: 50 MG.
     Route: 048
     Dates: end: 20191001

REACTIONS (4)
  - Aphasia [Not Recovered/Not Resolved]
  - Seizure [Unknown]
  - Hemiparesis [Not Recovered/Not Resolved]
  - Ischaemic cerebral infarction [Not Recovered/Not Resolved]

NARRATIVE: CASE EVENT DATE: 20190928
